FAERS Safety Report 9172357 (Version 2)
Quarter: 2013Q1

REPORT INFORMATION
  Report Type: Spontaneous
  Country: CA (occurrence: CA)
  Receive Date: 20130319
  Receipt Date: 20130327
  Transmission Date: 20140127
  Serious: Yes (Other)
  Sender: FDA-Public Use
  Company Number: CA-PFIZER INC-2013086322

PATIENT
  Age: 64 Year
  Sex: Male
  Weight: 68.03 kg

DRUGS (8)
  1. LIPITOR [Suspect]
     Indication: BLOOD CHOLESTEROL
     Dosage: 80 MG, 1X/DAY
     Route: 048
     Dates: start: 201212
  2. ATORVASTATIN CALCIUM [Suspect]
     Indication: BLOOD CHOLESTEROL
     Dosage: 80 MG, 1X/DAY
     Route: 048
  3. CLOPIDOGREL [Concomitant]
     Indication: PERIPHERAL VASCULAR DISORDER
     Dosage: 75 MG, 1X/DAY
     Route: 048
     Dates: start: 201212
  4. CLOPIDOGREL [Concomitant]
     Indication: POST PROCEDURAL MYOCARDIAL INFARCTION
  5. ASA [Concomitant]
     Indication: PERIPHERAL VASCULAR DISORDER
     Dosage: 80 MG, 1X/DAY
     Dates: start: 201212
  6. ASA [Concomitant]
     Indication: POST PROCEDURAL MYOCARDIAL INFARCTION
  7. METOPROLOL [Concomitant]
     Indication: CARDIAC DISORDER
     Dosage: 6.25 MG, 1 TABLET 2X/DAY
     Route: 048
     Dates: start: 201212
  8. METOPROLOL [Concomitant]
     Indication: POST PROCEDURAL MYOCARDIAL INFARCTION

REACTIONS (5)
  - Muscle rupture [Recovering/Resolving]
  - Gait disturbance [Recovering/Resolving]
  - Pain in extremity [Recovered/Resolved]
  - Oedema peripheral [Recovered/Resolved]
  - Phlebitis [Unknown]
